FAERS Safety Report 14924365 (Version 1)
Quarter: 2018Q2

REPORT INFORMATION
  Report Type: Spontaneous
  Country: BR (occurrence: BR)
  Receive Date: 20180522
  Receipt Date: 20180522
  Transmission Date: 20180711
  Serious: Yes (Hospitalization, Other)
  Sender: FDA-Public Use
  Company Number: BR-GLAXOSMITHKLINE-BR2018GSK089980

PATIENT
  Sex: Male
  Weight: 13 kg

DRUGS (3)
  1. MONTELAIR [Concomitant]
     Active Substance: MONTELUKAST SODIUM
     Indication: OXYGEN SATURATION DECREASED
     Dosage: UNK
     Route: 048
  2. AEROLIN [Suspect]
     Active Substance: ALBUTEROL
     Indication: OXYGEN SATURATION DECREASED
     Dosage: UNK
     Route: 048
  3. SERETIDE [Suspect]
     Active Substance: FLUTICASONE PROPIONATE\SALMETEROL XINAFOATE
     Indication: OXYGEN SATURATION DECREASED
     Dosage: UNK UNK, BID
     Route: 055

REACTIONS (4)
  - Product prescribing issue [Recovered/Resolved]
  - Product use issue [Unknown]
  - Product use in unapproved indication [Unknown]
  - Hospitalisation [Unknown]
